FAERS Safety Report 5154199-2 (Version None)
Quarter: 2006Q4

REPORT INFORMATION
  Report Type: 
  Country: None (occurrence: None)
  Receive Date: 20061120
  Receipt Date: 20061026
  Transmission Date: 20070319
  Serious: Yes (Death, Hospitalization, Other)
  Sender: FDA-Public Use
  Company Number: IN-BRISTOL-MYERS SQUIBB COMPANY-13558507

PATIENT
  Sex: Female

DRUGS (4)
  1. BARACLUDE [Suspect]
     Indication: HEPATITIS B
     Route: 048
     Dates: start: 20060911, end: 20060930
  2. LAMIVUDINE [Suspect]
  3. AMIKACIN SULFATE [Concomitant]
  4. LINEZOLID [Concomitant]

REACTIONS (5)
  - CELLULITIS [None]
  - LEUKOPENIA [None]
  - RENAL FAILURE [None]
  - SEPSIS [None]
  - THROMBOCYTOPENIA [None]
